FAERS Safety Report 9232246 (Version 1)
Quarter: 2013Q2

REPORT INFORMATION
  Report Type: Spontaneous
  Country: US (occurrence: US)
  Receive Date: 20130415
  Receipt Date: 20130415
  Transmission Date: 20140414
  Serious: Yes (Death)
  Sender: FDA-Public Use
  Company Number: US-AMGEN-USASP2013026079

PATIENT
  Age: 64 Year
  Sex: Male

DRUGS (1)
  1. EPOGEN [Suspect]
     Indication: RENAL FAILURE CHRONIC
     Dosage: UNK

REACTIONS (1)
  - Death [Fatal]
